FAERS Safety Report 5241728-3 (Version None)
Quarter: 2007Q1

REPORT INFORMATION
  Report Type: 
  Country: None (occurrence: None)
  Receive Date: 20070220
  Receipt Date: 20070209
  Transmission Date: 20070707
  Serious: Yes (Hospitalization)
  Sender: FDA-Public Use
  Company Number: GB-ROCHE-482768

PATIENT
  Age: 9 Hour
  Sex: Male
  Weight: 3 kg

DRUGS (2)
  1. CLONAZEPAM [Suspect]
     Indication: EPILEPSY
     Route: 064
  2. ETHOSUXIMIDE [Suspect]
     Indication: EPILEPSY
     Route: 064

REACTIONS (1)
  - HYPOGLYCAEMIA [None]
